FAERS Safety Report 10741334 (Version 2)
Quarter: 2015Q1

REPORT INFORMATION
  Report Type: Report from Study
  Country: CA (occurrence: CA)
  Receive Date: 20150127
  Receipt Date: 20150225
  Transmission Date: 20150721
  Serious: Yes (Hospitalization)
  Sender: FDA-Public Use
  Company Number: CA-PFIZER INC-2015019469

PATIENT
  Age: 65 Year
  Sex: Female
  Weight: 64 kg

DRUGS (18)
  1. SENOKOT [Concomitant]
     Active Substance: SENNOSIDES
     Indication: CONSTIPATION PROPHYLAXIS
     Dosage: 8.6 MG, AS NEEDED
     Route: 048
     Dates: start: 201310
  2. PENLAC [Concomitant]
     Active Substance: CICLOPIROX
     Indication: NAIL DISORDER
     Dosage: UNK, 1X/DAY
     Route: 061
     Dates: start: 20140612
  3. CANDESARTAN [Concomitant]
     Active Substance: CANDESARTAN
     Dosage: 12 MG, 1X/DAY
     Route: 048
     Dates: start: 20140127
  4. TYLENOL WITH CODEINE [Concomitant]
     Active Substance: ACETAMINOPHEN\CODEINE PHOSPHATE
     Indication: PAIN
     Dosage: 300 MG, AS NEEDED
     Route: 048
     Dates: start: 20140331
  5. DOCUSATE [Concomitant]
     Active Substance: DOCUSATE
     Indication: CONSTIPATION PROPHYLAXIS
     Dosage: 200 MG, AS NEEDED
     Route: 048
     Dates: start: 201310
  6. AMLODIPINE [Concomitant]
     Active Substance: AMLODIPINE BESYLATE
     Indication: HYPERTENSION
     Dosage: 5 MG 1XDAY
     Route: 048
     Dates: start: 20140130, end: 20140219
  7. CANDESARTAN [Concomitant]
     Active Substance: CANDESARTAN
     Indication: HYPERTENSION
     Dosage: 4 MG, 1XDAY
     Route: 048
     Dates: start: 2003, end: 20140126
  8. PERCOCET [Concomitant]
     Active Substance: ACETAMINOPHEN\OXYCODONE HYDROCHLORIDE
     Indication: APPENDICITIS
     Dosage: 5 MG, AS NEEDED
     Route: 048
     Dates: start: 20140907
  9. FUCIDIN [Concomitant]
     Active Substance: FUSIDIC ACID
     Indication: RASH
     Dosage: 2 MG, AS NEEDED
     Route: 061
     Dates: start: 20141024
  10. MORPHINE [Concomitant]
     Active Substance: MORPHINE
     Indication: PROCEDURAL PAIN
     Dosage: 5 MG, AS NEEDED
     Route: 048
     Dates: start: 20131015
  11. SUTENT [Suspect]
     Active Substance: SUNITINIB MALATE
     Indication: METASTATIC RENAL CELL CARCINOMA
     Dosage: 75 MG, 10 DAYS ON, 7 DAY OFF
     Dates: start: 20131121, end: 20150112
  12. AMLODIPINE [Concomitant]
     Active Substance: AMLODIPINE BESYLATE
     Dosage: 10 MG, 1X/DAY
     Route: 048
     Dates: start: 20140220
  13. IMODIUM [Concomitant]
     Active Substance: LOPERAMIDE HYDROCHLORIDE
     Indication: DIARRHOEA
     Dosage: 2 MG, AS NEEDED
     Route: 048
     Dates: start: 20140325
  14. COLACE [Concomitant]
     Active Substance: DOCUSATE SODIUM
     Indication: CONSTIPATION PROPHYLAXIS
     Dosage: 100 MG, 2X/DAY
     Route: 048
     Dates: start: 20140907
  15. ROSUVASTATIN [Concomitant]
     Active Substance: ROSUVASTATIN
     Indication: BLOOD CHOLESTEROL
     Dosage: 10 MG, 1X/DAY
     Route: 048
     Dates: start: 20140907
  16. CRESTOR [Concomitant]
     Active Substance: ROSUVASTATIN CALCIUM
     Indication: HYPERCHOLESTEROLAEMIA
     Dosage: 10 MG, 1X/DAY
     Route: 048
     Dates: start: 2003
  17. PREVEX CREAM [Concomitant]
     Indication: RASH
     Dosage: UNK, 2X/DAY
     Route: 061
     Dates: start: 20140612
  18. PARIET [Concomitant]
     Active Substance: RABEPRAZOLE SODIUM
     Indication: DYSPEPSIA
     Dosage: 20 MG, AS NEEDED
     Route: 048
     Dates: start: 20140904

REACTIONS (1)
  - Colitis [Recovered/Resolved]

NARRATIVE: CASE EVENT DATE: 20150110
